FAERS Safety Report 15470517 (Version 1)
Quarter: 2018Q4

REPORT INFORMATION
  Report Type: Report from Study
  Country: US (occurrence: US)
  Receive Date: 20181005
  Receipt Date: 20181005
  Transmission Date: 20190205
  Serious: Yes (Hospitalization)
  Sender: FDA-Public Use
  Company Number: US-CELGENEUS-USA-20180601499

PATIENT
  Age: 73 Year
  Sex: Female
  Weight: 54.7 kg

DRUGS (1)
  1. VIDAZA [Suspect]
     Active Substance: AZACITIDINE
     Indication: MYELODYSPLASTIC SYNDROME
     Dosage: 75 MILLIGRAM/SQ. METER
     Route: 058
     Dates: start: 20180430, end: 20180507

REACTIONS (3)
  - Pancytopenia [Recovered/Resolved]
  - Sepsis [Recovered/Resolved]
  - Intraventricular haemorrhage [Recovered/Resolved]

NARRATIVE: CASE EVENT DATE: 20180517
